FAERS Safety Report 5246570-5 (Version None)
Quarter: 2007Q1

REPORT INFORMATION
  Report Type: 
  Country: None (occurrence: None)
  Receive Date: 20070222
  Receipt Date: 20070222
  Transmission Date: 20070707
  Serious: No
  Sender: FDA-Public Use
  Company Number: None

PATIENT
  Sex: Male
  Weight: 83.9154 kg

DRUGS (2)
  1. CYMBALTA [Suspect]
     Indication: BACK PAIN
     Dates: start: 20060801, end: 20061015
  2. CYMBALTA [Suspect]
     Indication: DEPRESSION
     Dates: start: 20060801, end: 20061015

REACTIONS (5)
  - AGGRESSION [None]
  - IMPRISONMENT [None]
  - MARITAL PROBLEM [None]
  - PHYSICAL ABUSE [None]
  - THERAPY CESSATION [None]
